FAERS Safety Report 8375470-7 (Version None)
Quarter: 2012Q2

REPORT INFORMATION
  Report Type: 
  Country: None (occurrence: None)
  Receive Date: 20120522
  Receipt Date: 20120510
  Transmission Date: 20120825
  Serious: Yes (Hospitalization)
  Sender: FDA-Public Use
  Company Number: GB-AMGEN-GBRCT2012030359

PATIENT
  Age: 47 Year
  Sex: Female
  Weight: 106.8 kg

DRUGS (9)
  1. ETANERCEPT [Suspect]
     Indication: PRODUCT USED FOR UNKNOWN INDICATION
     Dosage: 50 MG, QWK
     Dates: start: 20101208
  2. AMLODIPINE BESYLATE [Concomitant]
     Dosage: UNK
     Dates: start: 20090501
  3. BENDROFLUMETHIAZIDE [Concomitant]
     Dosage: UNK
     Dates: start: 20090501
  4. CANDESARTAN CILEXETIL [Concomitant]
     Dosage: UNK
     Dates: start: 20090501
  5. METHOTREXATE [Concomitant]
     Dosage: UNK
     Dates: start: 20110620
  6. DICLOFENAC SODIUM [Concomitant]
     Dosage: UNK
     Dates: start: 20100707
  7. AZULFIDINE [Concomitant]
     Dosage: UNK
     Dates: start: 20101122
  8. FOLIC ACID [Concomitant]
     Dosage: UNK
     Dates: start: 20110621
  9. TRAMADOL HYDROCHLORIDE [Concomitant]
     Dosage: UNK
     Dates: start: 20101122

REACTIONS (1)
  - TENDON RUPTURE [None]
